FAERS Safety Report 5213693-6 (Version None)
Quarter: 2007Q1

REPORT INFORMATION
  Report Type: 
  Country: None (occurrence: None)
  Receive Date: 20070119
  Receipt Date: 20070109
  Transmission Date: 20070707
  Serious: Yes (Death)
  Sender: FDA-Public Use
  Company Number: NL-PFIZER INC-2007003352

PATIENT
  Sex: Female

DRUGS (2)
  1. LYRICA [Suspect]
     Indication: FACIAL NEURALGIA
     Route: 048
  2. CARBAMAZEPINE [Concomitant]

REACTIONS (1)
  - ATRIOVENTRICULAR BLOCK [None]
